FAERS Safety Report 5922750-8 (Version None)
Quarter: 2008Q3

REPORT INFORMATION
  Report Type: 
  Country: None (occurrence: None)
  Receive Date: 20080909
  Receipt Date: 20080708
  Transmission Date: 20090109
  Serious: Yes (Other)
  Sender: FDA-Public Use
  Company Number: 163-20785-08070802

PATIENT
  Age: 62 Year
  Sex: Male

DRUGS (6)
  1. THALOMID [Suspect]
     Indication: MULTIPLE MYELOMA
     Dosage: 100 MG, 2 IN 1 D, ORAL : 200 MG, 1 IN 1 D, ORAL : 200-100MG, DAILY, ORAL
     Route: 048
     Dates: start: 20050211, end: 20050101
  2. THALOMID [Suspect]
     Indication: MULTIPLE MYELOMA
     Dosage: 100 MG, 2 IN 1 D, ORAL : 200 MG, 1 IN 1 D, ORAL : 200-100MG, DAILY, ORAL
     Route: 048
     Dates: start: 20050311, end: 20050601
  3. THALOMID [Suspect]
     Indication: MULTIPLE MYELOMA
     Dosage: 100 MG, 2 IN 1 D, ORAL : 200 MG, 1 IN 1 D, ORAL : 200-100MG, DAILY, ORAL
     Route: 048
     Dates: start: 20060313, end: 20060501
  4. THALOMID [Suspect]
     Indication: MULTIPLE MYELOMA
     Dosage: 100 MG, 2 IN 1 D, ORAL : 200 MG, 1 IN 1 D, ORAL : 200-100MG, DAILY, ORAL
     Route: 048
     Dates: start: 20060512, end: 20060901
  5. DEXAMETHASONE TAB [Concomitant]
  6. ZOMETA [Concomitant]

REACTIONS (2)
  - ATRIAL FIBRILLATION [None]
  - MYOCARDIAL INFARCTION [None]
